FAERS Safety Report 25628635 (Version 1)
Quarter: 2025Q3

REPORT INFORMATION
  Report Type: Spontaneous
  Country: CH (occurrence: CH)
  Receive Date: 20250731
  Receipt Date: 20250731
  Transmission Date: 20251020
  Serious: Yes (Life-Threatening, Hospitalization)
  Sender: TEVA
  Company Number: CH-TEVA-VS-3355532

PATIENT
  Age: 60 Year
  Sex: Male

DRUGS (5)
  1. FENTANYL [Suspect]
     Active Substance: FENTANYL
     Indication: Sedation
     Route: 065
  2. MEPIVACAINE [Interacting]
     Active Substance: MEPIVACAINE HYDROCHLORIDE
     Indication: Anaesthetic ophthalmic procedure
     Route: 065
  3. THIOPENTAL [Suspect]
     Active Substance: THIOPENTAL
     Indication: Sedation
     Route: 065
  4. BUPIVACAINE [Interacting]
     Active Substance: BUPIVACAINE
     Indication: Anaesthetic ophthalmic procedure
     Route: 065
  5. HYALURONIDASE [Interacting]
     Active Substance: HYALURONIDASE
     Indication: Anaesthetic ophthalmic procedure
     Route: 065

REACTIONS (4)
  - Local anaesthetic systemic toxicity [Recovering/Resolving]
  - Symptom masked [Recovering/Resolving]
  - Neurotoxicity [Recovering/Resolving]
  - Drug interaction [Unknown]
